FAERS Safety Report 8603068-1 (Version None)
Quarter: 2012Q3

REPORT INFORMATION
  Report Type: 
  Country: None (occurrence: None)
  Receive Date: 20120817
  Receipt Date: 20120716
  Transmission Date: 20120928
  Serious: No
  Sender: FDA-Public Use
  Company Number: US-GLAXOSMITHKLINE-A0986388A

PATIENT
  Age: 62 Year
  Sex: Male

DRUGS (21)
  1. VOTRIENT [Suspect]
     Indication: MALIGNANT SOFT TISSUE NEOPLASM
     Dosage: 800MG PER DAY
     Route: 048
     Dates: start: 20120606
  2. FISH OIL [Concomitant]
  3. ACTOS [Concomitant]
  4. SLOW-MAG [Concomitant]
  5. RAMIPRIL [Concomitant]
  6. FOLIC ACID [Concomitant]
  7. VICTOZA [Concomitant]
  8. MULTI-VITAMINS [Concomitant]
  9. LATANOPROST [Concomitant]
  10. ASCORBIC ACID [Concomitant]
  11. ASPIRIN [Concomitant]
  12. AZELASTINE HCL [Concomitant]
  13. METFORMIN HYDROCHLORIDE [Concomitant]
  14. GLUCOSAMINE + CHONDROITIN [Concomitant]
  15. BENADRYL [Concomitant]
  16. SINGULAIR [Concomitant]
  17. CRESTOR [Concomitant]
  18. GLIMEPIRIDE [Concomitant]
  19. AVAPRO [Concomitant]
  20. VITAMIN D [Concomitant]
  21. LYRICA [Concomitant]

REACTIONS (1)
  - DRUG INEFFECTIVE [None]
